FAERS Safety Report 16373859 (Version 1)
Quarter: 2019Q2

REPORT INFORMATION
  Report Type: Other
  Country: US (occurrence: US)
  Receive Date: 20190530
  Receipt Date: 20190530
  Transmission Date: 20190711
  Serious: Yes (Life-Threatening, Other)
  Sender: FDA-Public Use
  Company Number: US-BRECKENRIDGE PHARMACEUTICAL, INC.-2067609

PATIENT
  Age: 51 Year
  Sex: Male

DRUGS (4)
  1. LIDOCAINE. [Concomitant]
     Active Substance: LIDOCAINE
  2. METHYLPREDNISOLONE ACETATE. [Concomitant]
     Active Substance: METHYLPREDNISOLONE ACETATE
  3. OMNIPAQUE [Concomitant]
     Active Substance: IOHEXOL
  4. POLYETHLENE GLYCOL (PEG) [Suspect]
     Active Substance: POLYETHYLENE GLYCOLS

REACTIONS (1)
  - Type I hypersensitivity [Recovering/Resolving]
